FAERS Safety Report 8612339-4 (Version None)
Quarter: 2012Q3

REPORT INFORMATION
  Report Type: 
  Country: None (occurrence: None)
  Receive Date: 20120822
  Receipt Date: 20120508
  Transmission Date: 20120928
  Serious: No
  Sender: FDA-Public Use
  Company Number: US-MYLANLABS-2012S1009809

PATIENT
  Age: 52 Year
  Sex: Female

DRUGS (1)
  1. OCTREOTIDE ACETATE [Suspect]
     Route: 058
     Dates: start: 20120401, end: 20120508

REACTIONS (1)
  - INJECTION SITE RASH [None]
